FAERS Safety Report 9475928 (Version 3)
Quarter: 2013Q3

REPORT INFORMATION
  Report Type: Spontaneous
  Country: GB (occurrence: GB)
  Receive Date: 20130826
  Receipt Date: 20130902
  Transmission Date: 20140515
  Serious: Yes (Other)
  Sender: FDA-Public Use
  Company Number: GB-AMGEN-GBRSP2013054595

PATIENT
  Sex: Female

DRUGS (17)
  1. PROLIA [Suspect]
     Indication: OSTEOPOROSIS
     Route: 065
  2. ARANESP [Concomitant]
     Indication: PRODUCT USED FOR UNKNOWN INDICATION
     Dosage: 20 MUG, QWK
     Route: 042
  3. FOLIC ACID [Concomitant]
     Dosage: 5 MG, 3 TIMES/WK
     Route: 048
  4. DOCUSATE [Concomitant]
     Dosage: 100 MG 2 PRN 2X/DAY
     Route: 048
  5. ASPIRIN [Concomitant]
     Dosage: 75 MG, QD
     Route: 048
  6. IRON [Concomitant]
     Dosage: 100MG/5 ML
     Route: 042
  7. ALFACALCIDOL [Concomitant]
     Dosage: 0.25 MUG, 3 TIMES/WK
     Route: 048
  8. RANITIDINE [Concomitant]
     Dosage: 150 MG, BID
     Route: 048
  9. ASCORBIC ACID [Concomitant]
     Dosage: 50 MG, QD
     Route: 048
  10. CALCICHEW [Concomitant]
     Dosage: 1250 MG, 1 3X1DAY
     Route: 048
  11. LOPERAMIDE [Concomitant]
     Dosage: 2 MG, 1 AS NECESSARY
     Route: 048
  12. CHOLECALCIFEROL [Concomitant]
     Dosage: 1000 UNIT, 3 TIMES/WK
     Route: 048
  13. INSULIN GLARGINE [Concomitant]
     Dosage: 100 UNIT, AS NECESSARY
     Route: 058
  14. INSULIN ASPART [Concomitant]
     Dosage: 3 ML, TID
     Route: 058
  15. VITAMIN B [Concomitant]
     Dosage: UNK UNK, 3 TIMES/WK
     Route: 048
  16. THIAMINE [Concomitant]
     Dosage: 100 MG, QD
     Route: 048
  17. PARACETAMOL [Concomitant]
     Dosage: 500 MG, 2 AS NECESSARY
     Route: 048

REACTIONS (6)
  - Pelvic sepsis [Recovered/Resolved]
  - Lower gastrointestinal haemorrhage [Unknown]
  - Aphasia [Unknown]
  - Hypoglycaemia [Unknown]
  - Abortion spontaneous [Unknown]
  - Arthropathy [Recovered/Resolved]
